FAERS Safety Report 5714261-X (Version None)
Quarter: 2008Q2

REPORT INFORMATION
  Report Type: 
  Country: None (occurrence: None)
  Receive Date: 20080422
  Receipt Date: 20080422
  Transmission Date: 20081010
  Serious: Yes (Hospitalization)
  Sender: FDA-Public Use
  Company Number: None

PATIENT
  Age: 65 Year
  Sex: Male
  Weight: 181.89 kg

DRUGS (2)
  1. WARFARIN SODIUM [Suspect]
     Indication: DEEP VEIN THROMBOSIS
     Dosage: 52.5 MG QWEEK PO
     Route: 048
     Dates: start: 20040802
  2. WARFARIN SODIUM [Suspect]
     Indication: PULMONARY EMBOLISM
     Dosage: 52.5 MG QWEEK PO
     Route: 048
     Dates: start: 20040802

REACTIONS (8)
  - CELLULITIS [None]
  - DEEP VEIN THROMBOSIS [None]
  - ERYTHEMA [None]
  - FEELING HOT [None]
  - OEDEMA PERIPHERAL [None]
  - PAIN [None]
  - THERAPEUTIC RESPONSE DECREASED [None]
  - THROMBOSIS [None]
